FAERS Safety Report 4881284-2 (Version None)
Quarter: 2006Q1

REPORT INFORMATION
  Report Type: 
  Country: None (occurrence: None)
  Receive Date: 20060112
  Receipt Date: 20060105
  Transmission Date: 20060701
  Serious: Yes (Hospitalization)
  Sender: FDA-Public Use
  Company Number: SUS1-2006-00027

PATIENT
  Sex: Male
  Weight: 79.4 kg

DRUGS (2)
  1. ADDERALL (DEXTROAMPHETAMINE SULFATE, DEXTROAMPHETAMINE SACCHARATE, AMP [Suspect]
     Indication: ATTENTION DEFICIT/HYPERACTIVITY DISORDER
     Dosage: 20 MG, 1X/DAY:QD
  2. PAIN MEDICATION [Concomitant]

REACTIONS (4)
  - BODY TEMPERATURE INCREASED [None]
  - CONFUSIONAL STATE [None]
  - PNEUMONIA [None]
  - RESPIRATORY TRACT INFECTION [None]
